FAERS Safety Report 10192521 (Version 1)
Quarter: 2014Q2

REPORT INFORMATION
  Report Type: Spontaneous
  Country: IT (occurrence: IT)
  Receive Date: 20140523
  Receipt Date: 20140523
  Transmission Date: 20141212
  Serious: Yes (Hospitalization)
  Sender: FDA-Public Use
  Company Number: PHHY2014IT060126

PATIENT
  Age: 30 Year
  Sex: Female

DRUGS (2)
  1. ALPRAZOLAM [Suspect]
     Dosage: 10 MG, ONCE/SINGLE
  2. RISPERIDONE [Suspect]
     Indication: DEPRESSION
     Dosage: 20 MG, ONCE/SINGLE

REACTIONS (3)
  - Suicide attempt [Recovered/Resolved]
  - Sopor [Recovered/Resolved]
  - Gallbladder disorder [Recovered/Resolved]
